FAERS Safety Report 5017502-X (Version None)
Quarter: 2006Q2

REPORT INFORMATION
  Report Type: 
  Country: None (occurrence: None)
  Receive Date: 20060601
  Receipt Date: 20060601
  Transmission Date: 20061013
  Serious: Yes (Life-Threatening, Hospitalization)
  Sender: FDA-Public Use
  Company Number: None

PATIENT
  Age: 34 Year
  Sex: Male
  Weight: 130.6 kg

DRUGS (1)
  1. CIPROFLOXACIN [Suspect]

REACTIONS (1)
  - ANAPHYLACTIC REACTION [None]
